FAERS Safety Report 16949313 (Version 1)
Quarter: 2019Q4

REPORT INFORMATION
  Report Type: Spontaneous
  Country: US (occurrence: US)
  Receive Date: 20191023
  Receipt Date: 20191023
  Transmission Date: 20200122
  Serious: Yes (Hospitalization, Other)
  Sender: FDA-Public Use
  Company Number: US-SUN PHARMACEUTICAL INDUSTRIES LTD-2019R1-224125

PATIENT

DRUGS (1)
  1. PHENYTOIN. [Suspect]
     Active Substance: PHENYTOIN
     Indication: EPILEPSY
     Dosage: UNK
     Route: 065
     Dates: start: 20190627

REACTIONS (9)
  - Gait disturbance [Unknown]
  - Rib fracture [Unknown]
  - Asthenia [Unknown]
  - Dizziness [Unknown]
  - Skin laceration [Unknown]
  - Drug level above therapeutic [Unknown]
  - Fall [Unknown]
  - Cerebrovascular accident [Unknown]
  - Feeling abnormal [Unknown]

NARRATIVE: CASE EVENT DATE: 2019
